FAERS Safety Report 6222304-2 (Version None)
Quarter: 2009Q2

REPORT INFORMATION
  Report Type: 
  Country: None (occurrence: None)
  Receive Date: 20090611
  Receipt Date: 20090603
  Transmission Date: 20091009
  Serious: Yes (Other)
  Sender: FDA-Public Use
  Company Number: PHHY2009DE22412

PATIENT
  Sex: Male

DRUGS (1)
  1. SANDOSTATIN LAR [Suspect]
     Dosage: 10 MG
     Dates: start: 20090501

REACTIONS (3)
  - FEELING ABNORMAL [None]
  - PANIC REACTION [None]
  - SLEEP DISORDER [None]
